FAERS Safety Report 24460125 (Version 1)
Quarter: 2024Q4

REPORT INFORMATION
  Report Type: Report from Study
  Country: CN (occurrence: CN)
  Receive Date: 20241018
  Receipt Date: 20241018
  Transmission Date: 20250115
  Serious: No
  Sender: ROCHE
  Company Number: CN-ROCHE-3545163

PATIENT

DRUGS (2)
  1. RITUXIMAB [Suspect]
     Active Substance: RITUXIMAB
     Indication: Encephalitis autoimmune
     Dosage: CONTINUOUS TREATMENT FOR 12 MONTHS
     Route: 042
  2. RITUXIMAB [Suspect]
     Active Substance: RITUXIMAB
     Indication: Encephalitis autoimmune

REACTIONS (5)
  - Malnutrition [Unknown]
  - Leukopenia [Unknown]
  - Urinary tract infection [Unknown]
  - Pneumonia [Unknown]
  - Off label use [Unknown]
